FAERS Safety Report 7217468-8 (Version None)
Quarter: 2011Q1

REPORT INFORMATION
  Report Type: 
  Country: None (occurrence: None)
  Receive Date: 20110110
  Receipt Date: 20110106
  Transmission Date: 20110831
  Serious: Yes (Death)
  Sender: FDA-Public Use
  Company Number: PHHY2011CA01327

PATIENT
  Sex: Female

DRUGS (1)
  1. ALISKIREN [Suspect]

REACTIONS (1)
  - DEATH [None]
